FAERS Safety Report 20736251 (Version 9)
Quarter: 2022Q4

REPORT INFORMATION
  Report Type: Spontaneous
  Country: US (occurrence: US)
  Receive Date: 20220421
  Receipt Date: 20221128
  Transmission Date: 20230113
  Serious: No
  Sender: FDA-Public Use
  Company Number: US-PFIZER INC-202200058060

PATIENT
  Age: 63 Year
  Sex: Female

DRUGS (6)
  1. IBRANCE [Suspect]
     Active Substance: PALBOCICLIB
     Indication: Breast cancer female
     Dosage: QD 21/28 DAYS
     Dates: start: 20211028
  2. IBRANCE [Suspect]
     Active Substance: PALBOCICLIB
     Dosage: 100 MG
     Dates: start: 20211214
  3. IBRANCE [Suspect]
     Active Substance: PALBOCICLIB
     Dosage: 3X7 UD TAB 21
  4. VITAMIN D3 [Concomitant]
     Active Substance: CHOLECALCIFEROL
     Dosage: UNK
     Dates: start: 2005
  5. VITAMIN C [Concomitant]
     Active Substance: ASCORBIC ACID
     Dosage: UNK
     Dates: start: 2005
  6. COD LIVER OIL [Concomitant]
     Active Substance: COD LIVER OIL
     Dosage: UNK
     Dates: start: 2005

REACTIONS (8)
  - Full blood count abnormal [Unknown]
  - Arthralgia [Not Recovered/Not Resolved]
  - Red blood cell count decreased [Unknown]
  - White blood cell count decreased [Not Recovered/Not Resolved]
  - Lymphadenopathy [Recovering/Resolving]
  - Neoplasm progression [Unknown]
  - Circumstance or information capable of leading to medication error [Unknown]
  - Overweight [Unknown]
